FAERS Safety Report 16569139 (Version 1)
Quarter: 2019Q3

REPORT INFORMATION
  Report Type: Spontaneous
  Country: US (occurrence: US)
  Receive Date: 20190714
  Receipt Date: 20190714
  Transmission Date: 20191004
  Serious: Yes (Life-Threatening, Other)
  Sender: FDA-Public Use
  Company Number: US-NALPROPION PHARMACEUTICALS INC.-2019-007840

PATIENT
  Age: 38 Year
  Sex: Female
  Weight: 104.31 kg

DRUGS (2)
  1. UNITHROID [Concomitant]
     Active Substance: LEVOTHYROXINE SODIUM
     Indication: HYPOTHYROIDISM
     Dosage: 100 ?G, UNK (STARTED: BEFORE CONTRAVE)
     Route: 065
  2. CONTRAVE [Suspect]
     Active Substance: BUPROPION HYDROCHLORIDE\NALTREXONE HYDROCHLORIDE
     Indication: OBESITY
     Dosage: 1 TAB, QD (ONE TABLET IN THE MORNING)
     Route: 048
     Dates: start: 20190603, end: 20190701

REACTIONS (5)
  - Emotional disorder [Not Recovered/Not Resolved]
  - Suicidal ideation [Recovered/Resolved]
  - Frustration tolerance decreased [Unknown]
  - Suicide attempt [Recovered/Resolved]
  - Feeling guilty [Unknown]

NARRATIVE: CASE EVENT DATE: 201906
